FAERS Safety Report 20543378 (Version 2)
Quarter: 2022Q1

REPORT INFORMATION
  Report Type: Spontaneous
  Country: US (occurrence: US)
  Receive Date: 20220302
  Receipt Date: 20220317
  Transmission Date: 20220423
  Serious: Yes (Hospitalization)
  Sender: FDA-Public Use
  Company Number: US-TEVA-2022-US-2011685

PATIENT
  Age: 63 Year
  Sex: Female

DRUGS (6)
  1. BUDESONIDE [Suspect]
     Active Substance: BUDESONIDE
     Indication: Chronic obstructive pulmonary disease
     Dosage: THE WOMAN RECEIVED BUDESONIDE INHALER TWICE DAILY
     Route: 045
  2. METHYLPREDNISOLONE [Suspect]
     Active Substance: METHYLPREDNISOLONE
     Indication: Chronic obstructive pulmonary disease
     Dosage: ADMINISTERED IN THE EMERGENCY DEPARTMENT
     Route: 065
  3. SOLU-MEDROL [Suspect]
     Active Substance: METHYLPREDNISOLONE SODIUM SUCCINATE
     Indication: Chronic obstructive pulmonary disease
     Dosage: 160 MILLIGRAM DAILY; THE PATIENT RECEIVED METHYLPREDNISOLONE 40MG IV Q6H
     Route: 042
  4. ALBUTEROL\IPRATROPIUM [Concomitant]
     Active Substance: ALBUTEROL\IPRATROPIUM
     Indication: Chronic obstructive pulmonary disease
     Dosage: THE PATIENT RECEIVED ALBUTEROL-IPRATROPIUM NEBULIZATION Q4H
     Route: 065
  5. NITROGLYCERIN [Concomitant]
     Active Substance: NITROGLYCERIN
     Indication: Hypertensive urgency
     Route: 042
  6. MAGNESIUM [Concomitant]
     Active Substance: MAGNESIUM
     Indication: Chronic obstructive pulmonary disease
     Route: 065

REACTIONS (5)
  - Herpes simplex oesophagitis [Recovered/Resolved]
  - Lymphopenia [Unknown]
  - Oesophageal ulcer [Recovered/Resolved]
  - Haematemesis [Recovered/Resolved]
  - Gastrointestinal haemorrhage [Recovered/Resolved]
